FAERS Safety Report 8258075-8 (Version None)
Quarter: 2012Q2

REPORT INFORMATION
  Report Type: 
  Country: None (occurrence: None)
  Receive Date: 20120404
  Receipt Date: 20120323
  Transmission Date: 20120825
  Serious: Yes (Other)
  Sender: FDA-Public Use
  Company Number: US-JNJFOC-20120312813

PATIENT
  Sex: Female
  Weight: 68.04 kg

DRUGS (9)
  1. ASPIRIN [Concomitant]
     Route: 065
  2. UNKNOWN MEDICATION [Concomitant]
     Indication: HYPERTENSION
     Route: 065
  3. REMICADE [Suspect]
     Indication: OSTEOARTHRITIS
     Route: 042
     Dates: start: 20110101
  4. REMICADE [Suspect]
     Route: 042
     Dates: start: 20080101, end: 20110101
  5. REMICADE [Suspect]
     Indication: RHEUMATOID ARTHRITIS
     Route: 042
     Dates: start: 20110101
  6. REMICADE [Suspect]
     Route: 042
     Dates: start: 20080101, end: 20110101
  7. METHOTREXATE [Concomitant]
     Indication: OSTEOARTHRITIS
     Route: 065
  8. METHOTREXATE [Concomitant]
     Indication: RHEUMATOID ARTHRITIS
     Route: 065
  9. UNKNOWN MEDICATION [Concomitant]
     Indication: BLOOD CHOLESTEROL ABNORMAL
     Route: 065

REACTIONS (5)
  - DRUG INEFFECTIVE [None]
  - WEIGHT DECREASED [None]
  - CARDIAC DISORDER [None]
  - JOINT INJURY [None]
  - FALL [None]
